FAERS Safety Report 5132412-5 (Version None)
Quarter: 2006Q4

REPORT INFORMATION
  Report Type: 
  Country: None (occurrence: None)
  Receive Date: 20061017
  Receipt Date: 20061009
  Transmission Date: 20070319
  Serious: Yes (Other)
  Sender: FDA-Public Use
  Company Number: B0440568A

PATIENT
  Age: 63 Year
  Sex: Female
  Weight: 66.0437 kg

DRUGS (4)
  1. TEMOVATE [Suspect]
     Indication: LICHEN SCLEROSUS
     Dosage: .05 MG/G / TOPICAL
     Route: 061
  2. TESTOSTERONE PROPIONATE [Suspect]
     Dosage: TOPICAL
     Route: 061
  3. BECONASE INHALER (BECLOMETHASONE DIPROPION.) [Suspect]
     Indication: ASTHMA
     Dosage: INHALED
     Route: 055
  4. FLUTICASONE PROPIONATE [Suspect]
     Indication: RHINITIS ALLERGIC

REACTIONS (8)
  - ASTHMA [None]
  - BLOOD TESTOSTERONE INCREASED [None]
  - CUSHING'S SYNDROME [None]
  - ERYTHEMA [None]
  - HIRSUTISM [None]
  - RHINITIS ALLERGIC [None]
  - SKIN ATROPHY [None]
  - SWELLING FACE [None]
